FAERS Safety Report 5825723-9 (Version None)
Quarter: 2008Q3

REPORT INFORMATION
  Report Type: 
  Country: None (occurrence: None)
  Receive Date: 20080729
  Receipt Date: 20080708
  Transmission Date: 20090109
  Serious: Yes (Hospitalization)
  Sender: FDA-Public Use
  Company Number: FR-ASTRAZENECA-2008SE03510

PATIENT
  Sex: Female

DRUGS (10)
  1. KENZEN 16 MG [Suspect]
     Indication: HYPERTENSION
     Route: 048
     Dates: end: 20080526
  2. PENICILLIN G POTASSIUM [Suspect]
     Indication: ERYSIPELAS
     Route: 042
     Dates: start: 20080417, end: 20080423
  3. PYOSTACINE [Suspect]
     Indication: ERYSIPELAS
     Route: 048
     Dates: start: 20080423, end: 20080515
  4. TAVANIC [Suspect]
     Indication: ERYSIPELAS
     Route: 048
     Dates: start: 20080514, end: 20080606
  5. LASIX [Suspect]
     Indication: DRUG USE FOR UNKNOWN INDICATION
     Route: 048
  6. TARDYFERON [Suspect]
     Indication: IRON DEFICIENCY
     Route: 048
     Dates: end: 20080528
  7. ASCORBIC ACID [Suspect]
     Indication: DRUG USE FOR UNKNOWN INDICATION
     Route: 048
     Dates: end: 20080528
  8. PRAXILENE [Suspect]
     Indication: ARTERIAL DISORDER
     Route: 048
     Dates: end: 20080528
  9. MORPHINE [Suspect]
     Indication: DRUG USE FOR UNKNOWN INDICATION
     Route: 048
  10. PRAVADUAL (PRAVASTATIN, ACETYLSALICYLIC ACID) [Suspect]
     Indication: PROPHYLAXIS
     Route: 048

REACTIONS (2)
  - NEPHROPATHY [None]
  - RENAL FAILURE ACUTE [None]
